FAERS Safety Report 5491917-8 (Version None)
Quarter: 2007Q4

REPORT INFORMATION
  Report Type: 
  Country: None (occurrence: None)
  Receive Date: 20071022
  Receipt Date: 20071016
  Transmission Date: 20080405
  Serious: Yes (Hospitalization)
  Sender: FDA-Public Use
  Company Number: A0688764A

PATIENT
  Sex: Female

DRUGS (2)
  1. CITRUCEL [Suspect]
     Indication: CONSTIPATION
     Route: 048
     Dates: start: 20071003
  2. EX-LAX [Suspect]
     Indication: CONSTIPATION
     Dosage: 4TBS THREE TIMES PER DAY
     Route: 048
     Dates: start: 20071003, end: 20071003

REACTIONS (7)
  - ANAPHYLACTIC SHOCK [None]
  - ASTHMA [None]
  - DYSPNOEA [None]
  - EAR PAIN [None]
  - OVERDOSE [None]
  - RECTAL HAEMORRHAGE [None]
  - SHOCK [None]
